FAERS Safety Report 8903761 (Version 2)
Quarter: 2012Q4

REPORT INFORMATION
  Report Type: Report from Study
  Country: GB (occurrence: GB)
  Receive Date: 20121113
  Receipt Date: 20121212
  Transmission Date: 20130627
  Serious: Yes (Death, Hospitalization)
  Sender: FDA-Public Use
  Company Number: GB-CELGENEUS-167-21880-12103581

PATIENT
  Age: 66 Year
  Sex: Female

DRUGS (3)
  1. REVLIMID [Suspect]
     Indication: MYELOMA
     Dosage: 25 Milligram
     Route: 048
     Dates: start: 20120922
  2. CYCLOPHOSPHAMIDE [Suspect]
     Indication: MYELOMA
     Route: 048
     Dates: start: 20120922
  3. DEXAMETHASONE [Suspect]
     Indication: MYELOMA
     Route: 048
     Dates: start: 20120922

REACTIONS (1)
  - Upper respiratory tract infection [Fatal]
